FAERS Safety Report 7288297-4 (Version None)
Quarter: 2011Q1

REPORT INFORMATION
  Report Type: 
  Country: None (occurrence: None)
  Receive Date: 20110211
  Receipt Date: 20110131
  Transmission Date: 20110831
  Serious: Yes (Other)
  Sender: FDA-Public Use
  Company Number: DE-BAYER-2011-008335

PATIENT
  Sex: Male
  Weight: 87 kg

DRUGS (7)
  1. UREA [Concomitant]
     Indication: RASH
     Dosage: UNK
     Route: 061
     Dates: start: 20091029
  2. METOPROLOL [Concomitant]
     Indication: HYPERTENSION
     Dosage: 95 MG, UNK
     Route: 048
     Dates: start: 20100331
  3. SORAFENIB (RAF KINASE INHIBITOR) [Suspect]
     Dosage: 400 MG, QD
     Dates: start: 20091117, end: 20110121
  4. SIMVASTATIN [Concomitant]
     Indication: HYPERCHOLESTEROLAEMIA
     Dosage: 20 MG, UNK
     Route: 048
     Dates: start: 20090901
  5. SORAFENIB (RAF KINASE INHIBITOR) [Suspect]
     Indication: HEPATIC NEOPLASM MALIGNANT
     Dosage: 400 MG, BID
     Route: 048
     Dates: start: 20090930, end: 20091028
  6. PANTOPRAZOLE [Concomitant]
     Indication: GASTRITIS PROPHYLAXIS
     Dosage: 40 MG, UNK
     Route: 048
     Dates: start: 20090901
  7. UREA [Concomitant]
     Indication: PALMAR-PLANTAR ERYTHRODYSAESTHESIA SYNDROME
     Dosage: UNK
     Route: 061
     Dates: start: 20100123

REACTIONS (1)
  - LEFT VENTRICULAR DYSFUNCTION [None]
